FAERS Safety Report 9134975 (Version 1)
Quarter: 2013Q1

REPORT INFORMATION
  Report Type: Spontaneous
  Country: US (occurrence: US)
  Receive Date: 20130304
  Receipt Date: 20130304
  Transmission Date: 20140127
  Serious: Yes (Other)
  Sender: FDA-Public Use
  Company Number: US-PFIZER INC-2013070209

PATIENT
  Age: 87 Year
  Sex: Female
  Weight: 61.22 kg

DRUGS (3)
  1. ADVIL [Suspect]
     Indication: PAIN
     Dosage: UNK, AS NEEDED
     Route: 048
     Dates: end: 2008
  2. OMEPRAZOLE [Concomitant]
     Indication: GASTROOESOPHAGEAL REFLUX DISEASE
     Dosage: 20 MG, DAILY
  3. COUMADIN [Concomitant]
     Indication: ATRIAL FIBRILLATION
     Dosage: 2 MG FOUR TIMES A WEEK AND 4 MG FOR THREE TIMES A WEEK

REACTIONS (5)
  - Visual impairment [Recovered/Resolved]
  - Pruritus [Recovered/Resolved]
  - Chest discomfort [Recovered/Resolved]
  - Feeling abnormal [Recovered/Resolved]
  - Vomiting [Recovered/Resolved]
